FAERS Safety Report 10039880 (Version 1)
Quarter: 2014Q1

REPORT INFORMATION
  Report Type: Spontaneous
  Country: AT (occurrence: AT)
  Receive Date: 20140326
  Receipt Date: 20140326
  Transmission Date: 20141002
  Serious: Yes (Other)
  Sender: FDA-Public Use
  Company Number: AT-JNJFOC-20140311660

PATIENT
  Age: 68 Year
  Sex: Female
  Weight: 89 kg

DRUGS (9)
  1. REMICADE [Suspect]
     Indication: RHEUMATOID ARTHRITIS
     Route: 042
     Dates: start: 20120113, end: 20130823
  2. LEFLUNOMID [Concomitant]
     Indication: RHEUMATOID ARTHRITIS
     Dosage: 20
     Route: 065
     Dates: start: 200907
  3. LISINOPRIL [Concomitant]
     Indication: HYPERTENSION
     Dosage: 5
     Route: 065
  4. BISOPROLOL [Concomitant]
     Indication: HYPERTENSION
     Dosage: 2.5
     Route: 065
  5. FUROSEMID [Concomitant]
     Indication: PLEURAL EFFUSION
     Dosage: 40
     Route: 065
  6. TORASEMID [Concomitant]
     Indication: PLEURAL EFFUSION
     Dosage: 10
     Route: 065
  7. SIMVASTATIN [Concomitant]
     Indication: LOW DENSITY LIPOPROTEIN
     Dosage: 40
     Route: 065
  8. ESOMEPRAZOLE [Concomitant]
     Indication: GASTROINTESTINAL DISORDER THERAPY
     Dosage: 40
     Route: 065
  9. LEVOTHYROXINE [Concomitant]
     Indication: HYPOTHYROIDISM
     Dosage: 100
     Route: 065

REACTIONS (1)
  - Tuberculous pleurisy [Unknown]
